FAERS Safety Report 7568507-6 (Version None)
Quarter: 2011Q2

REPORT INFORMATION
  Report Type: 
  Country: None (occurrence: None)
  Receive Date: 20110623
  Receipt Date: 20110617
  Transmission Date: 20111010
  Serious: Yes (Death, Hospitalization, Other)
  Sender: FDA-Public Use
  Company Number: IT-JNJFOC-20110609360

PATIENT
  Sex: Male

DRUGS (2)
  1. AGRASTAT [Suspect]
     Indication: ANGIOPLASTY
     Route: 065
  2. REOPRO [Suspect]
     Indication: MYOCARDIAL INFARCTION
     Route: 065

REACTIONS (2)
  - INTESTINAL INFARCTION [None]
  - ARTERIAL HAEMORRHAGE [None]
